FAERS Safety Report 8519975-4 (Version None)
Quarter: 2012Q2

REPORT INFORMATION
  Report Type: 
  Country: None (occurrence: None)
  Receive Date: 20120406
  Receipt Date: 20090924
  Transmission Date: 20120825
  Serious: Yes (Death)
  Sender: FDA-Public Use
  Company Number: PHEH2009US11785

PATIENT
  Age: 84 Year
  Sex: Male

DRUGS (2)
  1. TASIGNA [Suspect]
     Indication: PANCREATIC CARCINOMA
     Dosage: 400 MG, BID, ORAL
     Route: 048
     Dates: start: 20090601
  2. TASIGNA [Suspect]
     Indication: CHRONIC MYELOID LEUKAEMIA
     Dosage: 400 MG, BID, ORAL
     Route: 048
     Dates: start: 20090601

REACTIONS (1)
  - CHRONIC MYELOID LEUKAEMIA [None]
